FAERS Safety Report 14763922 (Version 2)
Quarter: 2018Q3

REPORT INFORMATION
  Report Type: Other
  Country: US (occurrence: US)
  Receive Date: 20180416
  Receipt Date: 20180713
  Transmission Date: 20181010
  Serious: No
  Sender: FDA-Public Use
  Company Number: US-SAREPTA THERAPEUTICS, INC-SRP-000033-2018

PATIENT
  Sex: Male
  Weight: 35 kg

DRUGS (2)
  1. EXONDYS 51 [Suspect]
     Active Substance: ETEPLIRSEN
     Indication: DUCHENNE MUSCULAR DYSTROPHY
     Dosage: 960 MG (PER WEIGHT 32 KG)
     Route: 065
     Dates: start: 20180224
  2. BENADRYL [Suspect]
     Active Substance: DIPHENHYDRAMINE HYDROCHLORIDE
     Indication: PRODUCT USED FOR UNKNOWN INDICATION
     Dosage: UNK
     Route: 042

REACTIONS (5)
  - Agitation [Recovered/Resolved]
  - Restlessness [Recovered/Resolved]
  - Blood pressure increased [Recovered/Resolved]
  - Cold sweat [Recovered/Resolved]
  - Flushing [Recovered/Resolved]
